FAERS Safety Report 18334912 (Version 2)
Quarter: 2020Q4

REPORT INFORMATION
  Report Type: Spontaneous
  Country: FR (occurrence: FR)
  Receive Date: 20201001
  Receipt Date: 20201008
  Transmission Date: 20210113
  Serious: Yes (Other)
  Sender: FDA-Public Use
  Company Number: FR-PFIZER INC-2020375984

PATIENT
  Age: 53 Year
  Sex: Male

DRUGS (4)
  1. PERMIXON [Concomitant]
     Active Substance: HERBALS\SAW PALMETTO
  2. PARACETAMOL [Concomitant]
     Active Substance: ACETAMINOPHEN
  3. VIAGRA [Suspect]
     Active Substance: SILDENAFIL CITRATE
     Indication: DRUG ABUSE
     Dosage: 1 DF, SINGLE
     Route: 045
     Dates: start: 20200218
  4. ZOPICLONE [Concomitant]
     Active Substance: ZOPICLONE

REACTIONS (4)
  - Product use issue [Unknown]
  - Priapism [Not Recovered/Not Resolved]
  - Drug abuse [Not Recovered/Not Resolved]
  - Off label use [Unknown]

NARRATIVE: CASE EVENT DATE: 20200218
